FAERS Safety Report 23147188 (Version 1)
Quarter: 2023Q4

REPORT INFORMATION
  Report Type: Spontaneous
  Country: US (occurrence: US)
  Receive Date: 20231106
  Receipt Date: 20231106
  Transmission Date: 20240110
  Serious: No
  Sender: FDA-Public Use
  Company Number: US-Santen Inc-2023-USA-008662

PATIENT
  Sex: Female

DRUGS (2)
  1. NATACYN [Suspect]
     Active Substance: NATAMYCIN
     Indication: Multiple allergies
     Dosage: EVERY 4 HOURS WHILE AWAKE IN RIGHT EYE
     Route: 047
  2. NATACYN [Suspect]
     Active Substance: NATAMYCIN
     Indication: Eye pain

REACTIONS (9)
  - Product residue present [Unknown]
  - Eye pain [Not Recovered/Not Resolved]
  - Product residue present [Unknown]
  - Product storage error [Unknown]
  - Liquid product physical issue [Unknown]
  - Foreign body sensation in eyes [Unknown]
  - Foreign body sensation in eyes [Unknown]
  - Ocular hyperaemia [Not Recovered/Not Resolved]
  - Off label use [Unknown]
